FAERS Safety Report 25350384 (Version 2)
Quarter: 2025Q2

REPORT INFORMATION
  Report Type: Spontaneous
  Country: FR (occurrence: FR)
  Receive Date: 20250523
  Receipt Date: 20250609
  Transmission Date: 20250716
  Serious: Yes (Life-Threatening, Hospitalization)
  Sender: BAUSCH AND LOMB
  Company Number: FR-MLMSERVICE-20250513-PI504747-00217-1

PATIENT
  Age: 67 Year
  Sex: Male

DRUGS (2)
  1. METFORMIN [Interacting]
     Active Substance: METFORMIN HYDROCHLORIDE
     Indication: Type 2 diabetes mellitus
     Route: 048
  2. BIKTARVY [Interacting]
     Active Substance: BICTEGRAVIR SODIUM\EMTRICITABINE\TENOFOVIR ALAFENAMIDE FUMARATE
     Indication: HIV infection
     Route: 048

REACTIONS (12)
  - Toxicity to various agents [Unknown]
  - Disseminated intravascular coagulation [Unknown]
  - Acute respiratory failure [Unknown]
  - Shock [Unknown]
  - Acute hepatic failure [Unknown]
  - Acute kidney injury [Unknown]
  - Drug interaction [Unknown]
  - Multiple organ dysfunction syndrome [Unknown]
  - Ischaemic hepatitis [Unknown]
  - Hepatic cytolysis [Unknown]
  - Lactic acidosis [Unknown]
  - Intentional overdose [Unknown]
